FAERS Safety Report 15065183 (Version 4)
Quarter: 2021Q2

REPORT INFORMATION
  Report Type: Spontaneous
  Country: US (occurrence: US)
  Receive Date: 20180626
  Receipt Date: 20210517
  Transmission Date: 20210716
  Serious: No
  Sender: FDA-Public Use
  Company Number: US-009507513-1806USA010298

PATIENT
  Sex: Female

DRUGS (3)
  1. KEYTRUDA [Suspect]
     Active Substance: PEMBROLIZUMAB
     Indication: ADRENAL GLAND CANCER
  2. KEYTRUDA [Suspect]
     Active Substance: PEMBROLIZUMAB
     Indication: LUNG CARCINOMA CELL TYPE UNSPECIFIED STAGE IV
     Dosage: 4 MONTHS OR 4 TREATMENTS
     Route: 042
     Dates: start: 201802, end: 202002
  3. KEYTRUDA [Suspect]
     Active Substance: PEMBROLIZUMAB
     Indication: NON-SMALL CELL LUNG CANCER

REACTIONS (5)
  - Drug effective for unapproved indication [Unknown]
  - Ill-defined disorder [Recovered/Resolved]
  - Weight increased [Recovered/Resolved]
  - Seasonal allergy [Recovered/Resolved]
  - Product use in unapproved indication [Unknown]
